FAERS Safety Report 8967806 (Version 1)
Quarter: 2012Q4

REPORT INFORMATION
  Report Type: Spontaneous
  Country: None (occurrence: None)
  Receive Date: 20121210
  Receipt Date: 20121210
  Transmission Date: 20130627
  Serious: Yes (Hospitalization)
  Sender: FDA-Public Use
  Company Number: 2012120013

PATIENT
  Age: 82 Year
  Sex: Female

DRUGS (12)
  1. TOREM [Suspect]
     Indication: ESSENTIAL HYPERTENSION
     Route: 048
     Dates: end: 20091105
  2. TOREM [Suspect]
     Indication: ESSENTIAL HYPERTENSION
     Dates: end: 20091105
  3. METOLAZONE [Suspect]
     Indication: HEART DISORDER
     Route: 048
     Dates: end: 200911
  4. TRIATEC (RAMIPRIL) [Suspect]
     Indication: ESSENTIAL HYPERTENSION
     Route: 048
     Dates: end: 200911
  5. SERESTA [Suspect]
     Indication: DEPRESSIVE EPISODE
     Dosage: 1 Dosage forms, as required, oral
     Dates: end: 200911
  6. ASPIRIN [Concomitant]
  7. AMLODIPINE BESILATE [Concomitant]
  8. NITRODERM (GLYCERYL TRINITRATE) [Concomitant]
  9. BELOC (METOPROLOL TARTRATE, METOPROLOL SUCCINATE) [Concomitant]
  10. MAGNESIOCARD (MAGNESIUM ASPARTATE HYDROCHLORIDE) [Concomitant]
  11. SERETIDE DISCUS (FLUTICASONE PROPIONATE, SALMETEROL XINAFOATE) [Concomitant]
  12. CALCIMAGON D3 (CHOLECALCIFEROL, CALCIUM CARBONATE) [Concomitant]

REACTIONS (6)
  - Hyponatraemia [None]
  - Hypokalaemia [None]
  - Stupor [None]
  - Dehydration [None]
  - Renal failure chronic [None]
  - Condition aggravated [None]
